FAERS Safety Report 9139278 (Version 1)
Quarter: 2013Q1

REPORT INFORMATION
  Report Type: Spontaneous
  Country: GB (occurrence: GB)
  Receive Date: 20130305
  Receipt Date: 20130305
  Transmission Date: 20140127
  Serious: Yes (Hospitalization)
  Sender: FDA-Public Use
  Company Number: PHFR2013GB001399

PATIENT
  Sex: Male

DRUGS (1)
  1. CLOZARIL [Suspect]
     Indication: SCHIZOPHRENIA
     Dosage: UNK
     Route: 048
     Dates: start: 20010701, end: 20130225

REACTIONS (4)
  - Chronic obstructive pulmonary disease [Unknown]
  - Chest discomfort [Unknown]
  - Dyspnoea [Unknown]
  - Lower respiratory tract infection [Unknown]
